FAERS Safety Report 13374175 (Version 1)
Quarter: 2017Q1

REPORT INFORMATION
  Report Type: Report from Study
  Country: BR (occurrence: BR)
  Receive Date: 20170327
  Receipt Date: 20170327
  Transmission Date: 20170429
  Serious: Yes (Death)
  Sender: FDA-Public Use
  Company Number: BR-PFIZER INC-2017126732

PATIENT

DRUGS (3)
  1. CALCIUM FOLINATE [Suspect]
     Active Substance: LEUCOVORIN CALCIUM
     Indication: COLORECTAL CANCER STAGE III
     Dosage: 20 MG/M2, WEEKLY (PER WEEK FOR 6 CONSECUTIVE WEEKS)
     Route: 040
  2. FLUOROURACIL. [Suspect]
     Active Substance: FLUOROURACIL
     Indication: COLORECTAL CANCER STAGE III
     Dosage: 500 MG/M2, WEEKLY (PER WEEK FOR 6 CONSECUTIVE WEEKS)
     Route: 040
  3. OXALIPLATIN. [Suspect]
     Active Substance: OXALIPLATIN
     Indication: COLORECTAL CANCER STAGE III
     Dosage: 85 MG/M2, (OVER 2 HOURS AT WEEKS 1, 3, AND 5, EVERY 8 WEEKS)
     Route: 042

REACTIONS (3)
  - Sepsis [Fatal]
  - Diarrhoea [Fatal]
  - Acidosis [Fatal]
